FAERS Safety Report 17290468 (Version 1)
Quarter: 2020Q1

REPORT INFORMATION
  Report Type: Report from Study
  Country: None (occurrence: BR)
  Receive Date: 20200121
  Receipt Date: 20200121
  Transmission Date: 20200409
  Serious: Yes (Other)
  Sender: FDA-Public Use
  Company Number: BR-ABBVIE-20K-020-3235019-00

PATIENT
  Age: 32 Year
  Sex: Male
  Weight: 110 kg

DRUGS (1)
  1. HUMIRA [Suspect]
     Active Substance: ADALIMUMAB
     Indication: ANKYLOSING SPONDYLITIS
     Route: 058
     Dates: start: 20080301, end: 201909

REACTIONS (7)
  - Bedridden [Unknown]
  - Depression [Not Recovered/Not Resolved]
  - Mumps [Unknown]
  - Testicular disorder [Recovered/Resolved]
  - Ear infection [Recovered/Resolved]
  - Gait inability [Unknown]
  - Spondylitis [Not Recovered/Not Resolved]

NARRATIVE: CASE EVENT DATE: 201907
